FAERS Safety Report 4765042-5 (Version None)
Quarter: 2005Q3

REPORT INFORMATION
  Report Type: 
  Country: None (occurrence: None)
  Receive Date: 20050907
  Receipt Date: 20050830
  Transmission Date: 20060218
  Serious: Yes (Hospitalization)
  Sender: FDA-Public Use
  Company Number: 20052495

PATIENT
  Sex: Female

DRUGS (4)
  1. LIORESAL [Suspect]
     Indication: MUSCLE SPASTICITY
     Dosage: MCG, DAILY, INTRATHECAL
     Route: 037
  2. IV VALIUM [Concomitant]
  3. MORPHINE [Concomitant]
  4. BENADRYL [Concomitant]

REACTIONS (8)
  - BACK PAIN [None]
  - CATHETER RELATED COMPLICATION [None]
  - DEVICE FAILURE [None]
  - DIARRHOEA [None]
  - DRUG WITHDRAWAL SYNDROME [None]
  - MENTAL STATUS CHANGES [None]
  - OVERDOSE [None]
  - UNDERDOSE [None]
